FAERS Safety Report 4601923-0 (Version None)
Quarter: 2005Q1

REPORT INFORMATION
  Report Type: 
  Country: None (occurrence: None)
  Receive Date: 20050131
  Receipt Date: 20041028
  Transmission Date: 20050727
  Serious: No
  Sender: FDA-Public Use
  Company Number: 200417507US

PATIENT
  Age: 71 Year
  Sex: Female
  Weight: 56.8 kg

DRUGS (3)
  1. KETEK [Suspect]
     Indication: EAR DISCOMFORT
     Dosage: 400 MG BID
     Dates: start: 20040917, end: 20040918
  2. KETEK [Suspect]
     Indication: EAR INFECTION
     Dosage: 400 MG BID
     Dates: start: 20040917, end: 20040918
  3. ESTROGENS ESTERIFIED (ESTRATAB) [Concomitant]

REACTIONS (5)
  - ASTHENIA [None]
  - BALANCE DISORDER [None]
  - DIZZINESS [None]
  - NAUSEA [None]
  - VOMITING [None]
